FAERS Safety Report 10177173 (Version 1)
Quarter: 2014Q2

REPORT INFORMATION
  Report Type: Spontaneous
  Country: US (occurrence: US)
  Receive Date: 20140516
  Receipt Date: 20140516
  Transmission Date: 20141212
  Serious: No
  Sender: FDA-Public Use
  Company Number: US-PFIZER INC-2014132351

PATIENT
  Sex: 0

DRUGS (1)
  1. GABAPENTIN [Suspect]
     Dosage: UNK
     Dates: end: 201405

REACTIONS (5)
  - Back pain [Unknown]
  - Musculoskeletal discomfort [Unknown]
  - Impaired work ability [Unknown]
  - Pain [Unknown]
  - Euphoric mood [Unknown]
